FAERS Safety Report 6690989-2 (Version None)
Quarter: 2010Q2

REPORT INFORMATION
  Report Type: 
  Country: None (occurrence: None)
  Receive Date: 20100421
  Receipt Date: 20100415
  Transmission Date: 20101027
  Serious: Yes (Other)
  Sender: FDA-Public Use
  Company Number: US-ABBOTT-10P-163-0639230-00

PATIENT
  Sex: Female
  Weight: 124.4 kg

DRUGS (2)
  1. NIASPAN [Suspect]
     Indication: BLOOD TRIGLYCERIDES INCREASED
     Dosage: EVERY NIGHT
     Route: 048
     Dates: start: 20090101, end: 20091201
  2. NIASPAN [Suspect]
     Dates: start: 20100401

REACTIONS (4)
  - BLOOD TRIGLYCERIDES INCREASED [None]
  - FLUSHING [None]
  - GASTRIC PERFORATION [None]
  - HERNIA [None]
